FAERS Safety Report 14761623 (Version 1)
Quarter: 2018Q2

REPORT INFORMATION
  Report Type: Spontaneous
  Country: GB (occurrence: GB)
  Receive Date: 20180416
  Receipt Date: 20180416
  Transmission Date: 20180711
  Serious: Yes (Disabling, Other)
  Sender: FDA-Public Use
  Company Number: GB-TEVA-2018-GB-881701

PATIENT
  Age: 74 Year
  Sex: Male
  Weight: 89 kg

DRUGS (4)
  1. ENALAPRIL [Concomitant]
     Active Substance: ENALAPRIL
     Indication: CARDIOVASCULAR DISORDER
     Dosage: TAKEN FOR 20 YEARS - STILL TAKING
  2. ALLOPURINOL. [Suspect]
     Active Substance: ALLOPURINOL
     Dates: start: 201708, end: 201710
  3. PRAVASTATIN. [Concomitant]
     Active Substance: PRAVASTATIN
     Indication: CARDIOVASCULAR DISORDER
     Dosage: TAKEN FOR 20 YEARS - STILL TAKING
  4. CLOPIDOGREL [Concomitant]
     Active Substance: CLOPIDOGREL BISULFATE
     Indication: CARDIOVASCULAR DISORDER
     Dosage: TAKEN FOR 20 YEARS - STILL TAKING

REACTIONS (4)
  - Parkinson^s disease [Not Recovered/Not Resolved]
  - Muscle rigidity [Unknown]
  - Reduced facial expression [Unknown]
  - Bradykinesia [Unknown]

NARRATIVE: CASE EVENT DATE: 201709
